FAERS Safety Report 14960835 (Version 2)
Quarter: 2018Q3

REPORT INFORMATION
  Report Type: Report from Study
  Country: US (occurrence: US)
  Receive Date: 20180531
  Receipt Date: 20180719
  Transmission Date: 20181010
  Serious: No
  Sender: FDA-Public Use
  Company Number: US-AMGEN-USASL2018000326

PATIENT
  Sex: Male

DRUGS (2)
  1. REPATHA [Suspect]
     Active Substance: EVOLOCUMAB
     Indication: PRODUCT USED FOR UNKNOWN INDICATION
     Dosage: 420 MG, QMO
     Route: 058
  2. REPATHA [Suspect]
     Active Substance: EVOLOCUMAB
     Indication: LOW DENSITY LIPOPROTEIN INCREASED

REACTIONS (6)
  - Myalgia [Unknown]
  - Pain [Unknown]
  - Rhinorrhoea [Not Recovered/Not Resolved]
  - Back pain [Unknown]
  - Pain in extremity [Unknown]
  - Arthralgia [Unknown]
